FAERS Safety Report 10269742 (Version 1)
Quarter: 2014Q2

REPORT INFORMATION
  Report Type: Spontaneous
  Country: FR (occurrence: None)
  Receive Date: 20140625
  Receipt Date: 20140625
  Transmission Date: 20141212
  Serious: Yes (Hospitalization, Other)
  Sender: FDA-Public Use
  Company Number: NSR_01574_2014

PATIENT
  Age: 25 Year
  Sex: Female

DRUGS (4)
  1. BACLOFEN (BACLOFEN) [Suspect]
     Indication: ALCOHOL ABUSE
     Dosage: NOT THE PRESCRIBED DOSE, SUPPOSED DOSE
     Route: 048
  2. ALCOHOL [Suspect]
     Dosage: DF ORAL
     Route: 048
  3. COCAINE (COCAINE) [Suspect]
     Dosage: DF
  4. DIAZEPAM (DIAZEPAM) [Concomitant]
     Indication: PRODUCT USED FOR UNKNOWN INDICATION
     Dosage: NOT THE PRESCRIBED DOSE, DF) ORAL
     Route: 048

REACTIONS (5)
  - Toxicity to various agents [None]
  - Coma [None]
  - Coma scale abnormal [None]
  - Hypertension [None]
  - Intentional overdose [None]
